FAERS Safety Report 7058784-2 (Version None)
Quarter: 2010Q4

REPORT INFORMATION
  Report Type: 
  Country: None (occurrence: None)
  Receive Date: 20101022
  Receipt Date: 20101011
  Transmission Date: 20110411
  Serious: Yes (Hospitalization, Other)
  Sender: FDA-Public Use
  Company Number: US-ELI_LILLY_AND_COMPANY-US201008005400

PATIENT
  Sex: Male

DRUGS (8)
  1. ALIMTA [Suspect]
     Indication: BLADDER CANCER
     Dosage: UNK, UNK
     Dates: start: 20100706
  2. MULTI-VITAMINS [Concomitant]
  3. METAMUCIL-2 [Concomitant]
  4. CELEXA [Concomitant]
  5. COUMADIN [Concomitant]
  6. NORVASC [Concomitant]
  7. CIPRO [Concomitant]
  8. ZOFRAN [Concomitant]

REACTIONS (14)
  - ASTHENIA [None]
  - CONFUSIONAL STATE [None]
  - CONSTIPATION [None]
  - DECREASED APPETITE [None]
  - FEBRILE NEUTROPENIA [None]
  - GASTROINTESTINAL HAEMORRHAGE [None]
  - HICCUPS [None]
  - INTERNATIONAL NORMALISED RATIO INCREASED [None]
  - MALAISE [None]
  - MALIGNANT NEOPLASM PROGRESSION [None]
  - NAUSEA [None]
  - OEDEMA PERIPHERAL [None]
  - OFF LABEL USE [None]
  - WEIGHT DECREASED [None]
